FAERS Safety Report 15298593 (Version 1)
Quarter: 2018Q3

REPORT INFORMATION
  Report Type: Spontaneous
  Country: JP (occurrence: JP)
  Receive Date: 20180820
  Receipt Date: 20180820
  Transmission Date: 20181010
  Serious: Yes (Hospitalization, Other)
  Sender: FDA-Public Use
  Company Number: JP-NAPPMUNDI-GBR-2016-0040514

PATIENT
  Age: 35 Year
  Sex: Female

DRUGS (12)
  1. OXYCODONE HCL IR POWDER 0.5% [Suspect]
     Active Substance: OXYCODONE HYDROCHLORIDE
     Indication: CANCER PAIN
     Dosage: 100 MG, 7?8 TIMES DAILY
     Route: 048
     Dates: start: 201411
  2. MYONAL                             /01071502/ [Concomitant]
  3. CALONAL [Concomitant]
     Active Substance: ACETAMINOPHEN
     Indication: CANCER PAIN
     Dosage: UNK
  4. MAGNESIUM OXIDE. [Concomitant]
     Active Substance: MAGNESIUM OXIDE
  5. NEXIUM [Concomitant]
     Active Substance: ESOMEPRAZOLE MAGNESIUM
     Indication: PEPTIC ULCER
     Dosage: UNK
  6. PANTETHINE [Concomitant]
     Active Substance: PANTETHINE
  7. REMERON [Suspect]
     Active Substance: MIRTAZAPINE
     Indication: INSOMNIA
     Dosage: 15 MG, DAILY
     Route: 048
     Dates: start: 20160704
  8. METHADONE HYDROCHLORIDE. [Concomitant]
     Active Substance: METHADONE HYDROCHLORIDE
     Indication: CANCER PAIN
     Dosage: UNK
     Dates: start: 201502
  9. RIVOTRIL [Concomitant]
     Active Substance: CLONAZEPAM
     Indication: MYOCLONUS
     Dosage: UNK
  10. LYRICA [Suspect]
     Active Substance: PREGABALIN
     Indication: NEURALGIA
     Dosage: 25 MG, DAILY
     Route: 048
     Dates: start: 201607
  11. LYRICA [Suspect]
     Active Substance: PREGABALIN
     Indication: CANCER PAIN
     Dosage: 25 MG IN THE MORNING; 75 MG IN THE EVENING
     Route: 048
     Dates: start: 20160704, end: 201607
  12. LOXOPROFEN SODIUM [Concomitant]
     Active Substance: LOXOPROFEN SODIUM

REACTIONS (4)
  - Somnolence [Unknown]
  - Abnormal behaviour [Unknown]
  - Delirium [Recovered/Resolved]
  - Pyrexia [Unknown]

NARRATIVE: CASE EVENT DATE: 20160708
